FAERS Safety Report 4447846-1 (Version None)
Quarter: 2004Q3

REPORT INFORMATION
  Report Type: 
  Country: None (occurrence: None)
  Receive Date: 20040819
  Receipt Date: 20040322
  Transmission Date: 20050211
  Serious: Yes (Hospitalization)
  Sender: FDA-Public Use
  Company Number: PHEH2004US03311

PATIENT
  Age: 63 Year
  Sex: Male

DRUGS (1)
  1. LOTENSIN [Suspect]
     Dosage: 10 MG, QD
     Dates: start: 19990101

REACTIONS (4)
  - ASTHMA [None]
  - CHEST DISCOMFORT [None]
  - NASAL CONGESTION [None]
  - PYREXIA [None]
